FAERS Safety Report 18797598 (Version 1)
Quarter: 2021Q1

REPORT INFORMATION
  Report Type: Report from Study
  Country: BR (occurrence: BR)
  Receive Date: 20210127
  Receipt Date: 20210127
  Transmission Date: 20210419
  Serious: Yes (Other)
  Sender: FDA-Public Use
  Company Number: PHHY2019BR152440

PATIENT
  Age: 50 Year
  Sex: Male

DRUGS (4)
  1. COSENTYX [Suspect]
     Active Substance: SECUKINUMAB
     Indication: ANKYLOSING SPONDYLITIS
     Dosage: 150 MG, UNKNOWN
     Route: 065
     Dates: start: 20171228
  2. COSENTYX [Suspect]
     Active Substance: SECUKINUMAB
     Dosage: UNK
     Route: 065
     Dates: start: 201909
  3. COSENTYX [Suspect]
     Active Substance: SECUKINUMAB
     Dosage: 150 MG, QMO(PEN OF 150 MG)
     Route: 065
     Dates: start: 20171218
  4. TORSILAX [Concomitant]
     Active Substance: ACETAMINOPHEN\CAFFEINE\CARISOPRODOL\DICLOFENAC
     Indication: PAIN
     Dosage: UNK
     Route: 065

REACTIONS (15)
  - Pyrexia [Not Recovered/Not Resolved]
  - Pain [Unknown]
  - Limb discomfort [Not Recovered/Not Resolved]
  - Malaise [Unknown]
  - Joint swelling [Not Recovered/Not Resolved]
  - Rheumatic fever [Not Recovered/Not Resolved]
  - Tuberculin test positive [Unknown]
  - Arthralgia [Unknown]
  - Burning sensation [Unknown]
  - Pain in extremity [Not Recovered/Not Resolved]
  - Peripheral swelling [Not Recovered/Not Resolved]
  - Influenza [Not Recovered/Not Resolved]
  - Mobility decreased [Unknown]
  - Hypokinesia [Not Recovered/Not Resolved]
  - Musculoskeletal stiffness [Not Recovered/Not Resolved]

NARRATIVE: CASE EVENT DATE: 20191030
